FAERS Safety Report 25253173 (Version 1)
Quarter: 2025Q2

REPORT INFORMATION
  Report Type: Report from Study
  Country: FR (occurrence: FR)
  Receive Date: 20250430
  Receipt Date: 20250430
  Transmission Date: 20250717
  Serious: Yes (Congenital Anomaly, Other)
  Sender: LAURUS LABS LIMITED
  Company Number: FR-LAURUS LABS LIMITED-2025LAU000025

PATIENT

DRUGS (2)
  1. EMTRICITABINE\TENOFOVIR DISOPROXIL [Suspect]
     Active Substance: EMTRICITABINE\TENOFOVIR DISOPROXIL
     Indication: Product used for unknown indication
     Route: 064
  2. LOPINAVIR AND RITONAVIR [Suspect]
     Active Substance: LOPINAVIR\RITONAVIR
     Indication: Product used for unknown indication
     Route: 064

REACTIONS (2)
  - Neurodevelopmental disorder [Unknown]
  - Foetal exposure during pregnancy [Unknown]
